FAERS Safety Report 6297405-3 (Version None)
Quarter: 2009Q3

REPORT INFORMATION
  Report Type: 
  Country: None (occurrence: None)
  Receive Date: 20090804
  Receipt Date: 20090804
  Transmission Date: 20100115
  Serious: Yes (Other)
  Sender: FDA-Public Use
  Company Number: None

PATIENT
  Age: 55 Year
  Sex: Male
  Weight: 92.0802 kg

DRUGS (1)
  1. EQUATE IBUPROFEN 200 MG, COATED TABLETS PERRIGO, MI 49010 ALLEGAN, [Suspect]
     Indication: BACK PAIN
     Dosage: ONE TABLET ONE TIME PO
     Route: 048
     Dates: start: 20090802, end: 20090802

REACTIONS (1)
  - PRURITUS [None]
